FAERS Safety Report 14278704 (Version 1)
Quarter: 2017Q4

REPORT INFORMATION
  Report Type: Spontaneous
  Country: DE (occurrence: DE)
  Receive Date: 20171212
  Receipt Date: 20171212
  Transmission Date: 20180321
  Serious: Yes (Death, Life-Threatening, Hospitalization, Other)
  Sender: FDA-Public Use
  Company Number: DE-B.I. PHARMACEUTICALS,INC./RIDGEFIELD-2017-BI-062078

PATIENT
  Sex: Female
  Weight: 62 kg

DRUGS (2)
  1. GILOTRIF [Suspect]
     Active Substance: AFATINIB
     Indication: NON-SMALL CELL LUNG CANCER
     Route: 048
     Dates: start: 201604
  2. RIVAROXABAN [Concomitant]
     Active Substance: RIVAROXABAN
     Indication: ATRIAL TACHYCARDIA
     Route: 065

REACTIONS (27)
  - Metastases to lung [Unknown]
  - Paralysis [Unknown]
  - Pleural effusion [Unknown]
  - Intestinal dilatation [Unknown]
  - Pericarditis [Unknown]
  - Encephalopathy [Unknown]
  - Metastases to adrenals [Unknown]
  - Acute kidney injury [Unknown]
  - Chest X-ray abnormal [Unknown]
  - Inflammatory marker increased [Unknown]
  - Metabolic disorder [Unknown]
  - Cholestasis [Unknown]
  - Pyrexia [Unknown]
  - Renal impairment [Unknown]
  - Pneumonitis [Fatal]
  - Malignant neoplasm progression [Unknown]
  - Abdominal lymphadenopathy [Unknown]
  - Pulmonary embolism [Unknown]
  - Ileus paralytic [Unknown]
  - Cholangitis [Unknown]
  - Lung infection [Unknown]
  - Somnolence [Unknown]
  - Lumbar vertebral fracture [Unknown]
  - Cytomegalovirus infection [Unknown]
  - Atypical pneumonia [Unknown]
  - Septic shock [Unknown]
  - Rectal lesion [Unknown]
